FAERS Safety Report 7340941-9 (Version None)
Quarter: 2011Q1

REPORT INFORMATION
  Report Type: 
  Country: None (occurrence: None)
  Receive Date: 20110309
  Receipt Date: 20100623
  Transmission Date: 20110831
  Serious: No
  Sender: FDA-Public Use
  Company Number: US-ABBOTT-10P-163-0654027-00

PATIENT
  Age: 48 Year
  Sex: Female

DRUGS (5)
  1. UNKNOWN MEDICATION [Suspect]
  2. LUPRON DEPOT [Suspect]
     Indication: UTERINE LEIOMYOMA
     Dates: start: 20100401
  3. UNKNOWN MEDICATION [Suspect]
     Indication: UTERINE LEIOMYOMA
     Dates: start: 20100401
  4. UNKNOWN MEDICATION [Suspect]
     Dosage: 4-5 TABLETS DAILY
  5. TENORETIC [Concomitant]
     Indication: HYPERTENSION

REACTIONS (4)
  - ABDOMINAL PAIN [None]
  - DRUG INEFFECTIVE [None]
  - VAGINAL HAEMORRHAGE [None]
  - VULVOVAGINAL PAIN [None]
